FAERS Safety Report 10205523 (Version 1)
Quarter: 2014Q2

REPORT INFORMATION
  Report Type: Spontaneous
  Country: IT (occurrence: IT)
  Receive Date: 20140529
  Receipt Date: 20140529
  Transmission Date: 20141212
  Serious: Yes (Other)
  Sender: FDA-Public Use
  Company Number: IT-MYLANLABS-2014S1011865

PATIENT
  Age: 67 Year
  Sex: Male

DRUGS (7)
  1. CLOPIDOGREL [Suspect]
     Indication: MYOCARDIAL ISCHAEMIA
     Route: 048
     Dates: start: 20140303
  2. TRIATEC /00885601/ [Concomitant]
     Indication: PRODUCT USED FOR UNKNOWN INDICATION
  3. SELOKEN [Concomitant]
     Indication: PRODUCT USED FOR UNKNOWN INDICATION
  4. CARDIOASPIRIN [Concomitant]
     Indication: PRODUCT USED FOR UNKNOWN INDICATION
  5. EZETROL [Concomitant]
     Indication: PRODUCT USED FOR UNKNOWN INDICATION
  6. FULCROSUPRA [Concomitant]
     Indication: PRODUCT USED FOR UNKNOWN INDICATION
  7. PANTORC [Concomitant]
     Indication: PRODUCT USED FOR UNKNOWN INDICATION

REACTIONS (5)
  - Myalgia [Recovered/Resolved]
  - Nausea [Recovered/Resolved]
  - Paraesthesia [Recovered/Resolved]
  - Haemorrhage [Recovered/Resolved]
  - Vertigo [Recovered/Resolved]
